FAERS Safety Report 4367090-6 (Version None)
Quarter: 2004Q2

REPORT INFORMATION
  Report Type: 
  Country: None (occurrence: None)
  Receive Date: 20040528
  Receipt Date: 20040508
  Transmission Date: 20050107
  Serious: Yes (Other)
  Sender: FDA-Public Use
  Company Number: US-MERCK-0405USA00646

PATIENT
  Age: 60 Year
  Sex: Female

DRUGS (1)
  1. VIOXX [Suspect]
     Indication: PERIOPERATIVE ANALGESIA
     Route: 048

REACTIONS (3)
  - PRURITUS [None]
  - RASH [None]
  - SWELLING [None]
